FAERS Safety Report 9526001 (Version 1)
Quarter: 2013Q3

REPORT INFORMATION
  Report Type: Spontaneous
  Country: US (occurrence: US)
  Receive Date: 20130915
  Receipt Date: 20130915
  Transmission Date: 20140515
  Serious: No
  Sender: FDA-Public Use
  Company Number: US-009507513-1309USA002033

PATIENT
  Sex: Female

DRUGS (1)
  1. NEXPLANON [Suspect]
     Dosage: 68 MG
     Route: 059
     Dates: start: 201303, end: 201308

REACTIONS (1)
  - Uterine haemorrhage [Unknown]
